FAERS Safety Report 24035023 (Version 1)
Quarter: 2024Q3

REPORT INFORMATION
  Report Type: Spontaneous
  Country: NO (occurrence: NO)
  Receive Date: 20240701
  Receipt Date: 20240701
  Transmission Date: 20241017
  Serious: Yes (Other)
  Sender: SANOFI AVENTIS
  Company Number: None

PATIENT
  Age: 59 Year
  Sex: Female

DRUGS (4)
  1. ARAVA [Suspect]
     Active Substance: LEFLUNOMIDE
     Indication: Rheumatoid arthritis
     Dosage: UNK
     Route: 048
     Dates: start: 2023, end: 202402
  2. ADALIMUMAB [Suspect]
     Active Substance: ADALIMUMAB\ISOPROPYL ALCOHOL
     Indication: Rheumatoid arthritis
     Dosage: 1 DF, Q10D
     Dates: end: 2024
  3. VIMOVO [Concomitant]
     Active Substance: ESOMEPRAZOLE MAGNESIUM\NAPROXEN
     Dosage: 1DF; 12H
  4. TIBOLON ARISTO [Concomitant]
     Dosage: 2.5 MG, QD

REACTIONS (6)
  - Hyperhidrosis [Recovering/Resolving]
  - Weight increased [Unknown]
  - Skin odour abnormal [Unknown]
  - Rash [Recovering/Resolving]
  - Hypertension [Not Recovered/Not Resolved]
  - Infection susceptibility increased [Recovering/Resolving]
